FAERS Safety Report 8469786-3 (Version None)
Quarter: 2012Q2

REPORT INFORMATION
  Report Type: 
  Country: None (occurrence: None)
  Receive Date: 20120626
  Receipt Date: 20120613
  Transmission Date: 20120825
  Serious: Yes (Hospitalization)
  Sender: FDA-Public Use
  Company Number: HU-ELI_LILLY_AND_COMPANY-HU201206000183

PATIENT
  Age: 62 Year
  Sex: Female

DRUGS (4)
  1. DULOXETINE HYDROCHLORIDE [Suspect]
     Indication: DEPRESSION
     Dosage: 60 MG, QD
     Route: 048
     Dates: start: 20120501, end: 20120501
  2. ATARAX [Concomitant]
  3. PIRACETAM [Concomitant]
  4. FRONTIN [Concomitant]

REACTIONS (4)
  - RASH [None]
  - URTICARIA [None]
  - PHOTOSENSITIVITY REACTION [None]
  - HOSPITALISATION [None]
